FAERS Safety Report 21079355 (Version 2)
Quarter: 2022Q3

REPORT INFORMATION
  Report Type: Report from Study
  Country: ES (occurrence: ES)
  Receive Date: 20220714
  Receipt Date: 20220719
  Transmission Date: 20221027
  Serious: Yes (Other)
  Sender: FDA-Public Use
  Company Number: ES-ABBVIE-22K-144-4463420-00

PATIENT
  Sex: Female

DRUGS (2)
  1. CARBIDOPA\LEVODOPA [Suspect]
     Active Substance: CARBIDOPA\LEVODOPA
     Indication: Parkinson^s disease
     Route: 050
     Dates: start: 20190131
  2. CARBIDOPA\LEVODOPA [Suspect]
     Active Substance: CARBIDOPA\LEVODOPA

REACTIONS (9)
  - Upper limb fracture [Unknown]
  - Mobility decreased [Not Recovered/Not Resolved]
  - Gait inability [Recovered/Resolved]
  - Arthralgia [Not Recovered/Not Resolved]
  - Device issue [Recovered/Resolved]
  - Device occlusion [Recovered/Resolved]
  - Stoma site discharge [Unknown]
  - Depressed mood [Recovered/Resolved]
  - Mobility decreased [Recovered/Resolved]

NARRATIVE: CASE EVENT DATE: 20190101
